FAERS Safety Report 12392406 (Version 2)
Quarter: 2016Q3

REPORT INFORMATION
  Report Type: Spontaneous
  Country: US (occurrence: US)
  Receive Date: 20160523
  Receipt Date: 20160705
  Transmission Date: 20161109
  Serious: Yes (Hospitalization)
  Sender: FDA-Public Use
  Company Number: US-ASTRAZENECA-2016SE53234

PATIENT
  Sex: Female
  Weight: 25.9 kg

DRUGS (2)
  1. TUDORZA PRESSAIR [Suspect]
     Active Substance: ACLIDINIUM BROMIDE
     Indication: CHRONIC OBSTRUCTIVE PULMONARY DISEASE
     Dosage: 400 MCG ONE PUFF TWICE A DAY
     Route: 055
     Dates: start: 2012, end: 20160512
  2. FLOVENT [Concomitant]
     Active Substance: FLUTICASONE PROPIONATE
     Dosage: TWO PUFFS IN MORNING AND 2 PUFFS AT NIGHT
     Route: 055

REACTIONS (5)
  - Dyspnoea [Unknown]
  - Nasopharyngitis [Unknown]
  - Device malfunction [Unknown]
  - Pneumonia [Unknown]
  - Fatigue [Unknown]
